FAERS Safety Report 14438439 (Version 2)
Quarter: 2018Q2

REPORT INFORMATION
  Report Type: Spontaneous
  Country: DE (occurrence: DE)
  Receive Date: 20180125
  Receipt Date: 20180420
  Transmission Date: 20180711
  Serious: Yes (Hospitalization)
  Sender: FDA-Public Use
  Company Number: DE-ASTRAZENECA-2018SE08047

PATIENT
  Age: 59 Year
  Sex: Female

DRUGS (17)
  1. KALINOR (POTASSIUM BICARBONATE\POTASSIUM CITRATE) [Concomitant]
     Active Substance: POTASSIUM BICARBONATE\POTASSIUM CITRATE
     Dates: start: 20150504, end: 20150504
  2. LORAZEPAM. [Concomitant]
     Active Substance: LORAZEPAM
  3. VIMPAT [Concomitant]
     Active Substance: LACOSAMIDE
  4. BISOPROLOL [Concomitant]
     Active Substance: BISOPROLOL
  5. MOVICOL [Concomitant]
     Active Substance: POLYETHYLENE GLYCOL 3350\POTASSIUM CHLORIDE\SODIUM BICARBONATE\SODIUM CHLORIDE
  6. SEROQUEL XR [Interacting]
     Active Substance: QUETIAPINE FUMARATE
     Route: 048
     Dates: start: 20150420, end: 20150605
  7. KALINOR (POTASSIUM BICARBONATE\POTASSIUM CITRATE) [Concomitant]
     Active Substance: POTASSIUM BICARBONATE\POTASSIUM CITRATE
     Dates: start: 20150505, end: 20150505
  8. HALDOL [Concomitant]
     Active Substance: HALOPERIDOL
  9. TORASEMIDE [Concomitant]
     Active Substance: TORSEMIDE
  10. CALCIUM SANDOZ [Concomitant]
     Active Substance: CALCIUM
  11. DELIX PLUS [Concomitant]
     Active Substance: HYDROCHLOROTHIAZIDE\RAMIPRIL
  12. ZOPICLON [Concomitant]
     Active Substance: ZOPICLONE
  13. KEPPRA [Concomitant]
     Active Substance: LEVETIRACETAM
  14. SEROQUEL [Suspect]
     Active Substance: QUETIAPINE FUMARATE
     Route: 048
     Dates: start: 20150420, end: 20150505
  15. SEROQUEL [Interacting]
     Active Substance: QUETIAPINE FUMARATE
     Route: 048
     Dates: start: 20150506, end: 20150507
  16. AKINETON [Interacting]
     Active Substance: BIPERIDEN HYDROCHLORIDE
     Route: 065
  17. EUTHYROX [Concomitant]
     Active Substance: LEVOTHYROXINE SODIUM

REACTIONS (3)
  - Urinary retention [Recovered/Resolved]
  - Abdominal pain [Recovered/Resolved]
  - Urinary hesitation [Recovered/Resolved]

NARRATIVE: CASE EVENT DATE: 20150506
